FAERS Safety Report 10077236 (Version 2)
Quarter: 2014Q2

REPORT INFORMATION
  Report Type: Spontaneous
  Country: US (occurrence: US)
  Receive Date: 20140414
  Receipt Date: 20140414
  Transmission Date: 20141212
  Serious: Yes (Other)
  Sender: FDA-Public Use
  Company Number: US-BANPHARM-20131083

PATIENT
  Age: 89 Year
  Sex: Female
  Weight: 50.79 kg

DRUGS (2)
  1. NAPROXEN SODIUM 220 MG [Suspect]
     Indication: PAIN
     Dosage: 1 DF, Q12H,
     Route: 048
     Dates: start: 20130313, end: 20130318
  2. VITAMINS [Concomitant]

REACTIONS (3)
  - Hypersensitivity [Recovered/Resolved]
  - Joint stiffness [Recovered/Resolved]
  - Ear pain [Recovering/Resolving]
